FAERS Safety Report 4477933-3 (Version None)
Quarter: 2004Q3

REPORT INFORMATION
  Report Type: 
  Country: None (occurrence: None)
  Receive Date: 20040923
  Receipt Date: 20040827
  Transmission Date: 20050211
  Serious: No
  Sender: FDA-Public Use
  Company Number: USA040874634

PATIENT
  Age: 73 Year
  Sex: Female
  Weight: 47 kg

DRUGS (9)
  1. FORTEO [Suspect]
     Indication: BONE DENSITY DECREASED
     Dosage: 20 UG/1 DAY
     Dates: start: 20040721
  2. EVISTA [Suspect]
     Indication: BONE DENSITY DECREASED
     Dosage: 60 MG/1 DAY
  3. CALCIUM [Concomitant]
  4. TIAZAC [Concomitant]
  5. ACIPHEX [Concomitant]
  6. EYE DROPS (TETRYZOLINE HYDROCHLORIDE) [Concomitant]
  7. GLUCOSAMINE, CHONDROTITIN, MSM [Concomitant]
  8. SHARK CARTILAGE [Concomitant]
  9. SKELAXIN [Concomitant]

REACTIONS (8)
  - ASTHENIA [None]
  - BODY HEIGHT DECREASED [None]
  - BREAST PAIN [None]
  - CHEST PAIN [None]
  - DIZZINESS [None]
  - FEELING ABNORMAL [None]
  - GLAUCOMA [None]
  - MUSCLE CRAMP [None]
